FAERS Safety Report 25890068 (Version 1)
Quarter: 2025Q4

REPORT INFORMATION
  Report Type: Spontaneous
  Country: US (occurrence: US)
  Receive Date: 20251007
  Receipt Date: 20251007
  Transmission Date: 20260118
  Serious: Yes (Other)
  Sender: RANBAXY
  Company Number: US-SUN PHARMACEUTICAL INDUSTRIES INC-2025R1-530117

PATIENT
  Age: 75 Year
  Sex: Female

DRUGS (4)
  1. CLOTRIMAZOLE [Interacting]
     Active Substance: CLOTRIMAZOLE
     Indication: Urinary tract infection
     Dosage: UNK
     Route: 065
     Dates: start: 202508, end: 20250905
  2. KEVEYIS [Interacting]
     Active Substance: DICHLORPHENAMIDE
     Indication: Paralysis
     Dosage: 50 MILLIGRAM, BID
     Route: 048
     Dates: start: 20250826, end: 20250910
  3. FAMOTIDINE [Interacting]
     Active Substance: FAMOTIDINE
     Indication: Product used for unknown indication
     Dosage: UNK
     Route: 065
  4. METHENAMINE [Interacting]
     Active Substance: METHENAMINE
     Indication: Product used for unknown indication
     Dosage: UNK
     Route: 065

REACTIONS (9)
  - Paralysis [Unknown]
  - Drug interaction [Unknown]
  - Oropharyngeal pain [Unknown]
  - Asthenia [Unknown]
  - Dysgeusia [Not Recovered/Not Resolved]
  - Nausea [Unknown]
  - Decreased appetite [Unknown]
  - Weight decreased [Unknown]
  - Diarrhoea [Unknown]
